FAERS Safety Report 9183274 (Version 1)
Quarter: 2012Q4

REPORT INFORMATION
  Report Type: Report from Study
  Country: CA (occurrence: CA)
  Receive Date: 20121030
  Receipt Date: 20121030
  Transmission Date: 20130627
  Serious: Yes (Life-Threatening, Hospitalization)
  Sender: FDA-Public Use
  Company Number: CA-JNJFOC-20121011196

PATIENT
  Age: 70 None
  Sex: Female
  Weight: 143 kg

DRUGS (10)
  1. REMICADE [Suspect]
     Indication: RHEUMATOID ARTHRITIS
     Dosage: 6-7 weeks
     Route: 042
     Dates: start: 20070507
  2. REMICADE [Suspect]
     Indication: RHEUMATOID ARTHRITIS
     Dosage: infusion# 49
     Route: 042
     Dates: start: 20121004
  3. MORPHINE [Concomitant]
     Indication: ARTHRALGIA
     Route: 065
  4. HYDROCHLOROTHIAZIDE [Concomitant]
     Indication: HYPERTENSION
     Route: 065
  5. ARAVA [Concomitant]
     Indication: RHEUMATOID ARTHRITIS
     Route: 048
  6. PREDNISONE [Concomitant]
     Indication: RHEUMATOID ARTHRITIS
     Route: 048
  7. FLOVENT [Concomitant]
     Indication: ASTHMA
     Route: 065
  8. ATROVENT [Concomitant]
     Indication: ASTHMA
     Route: 065
  9. VITAMIN D W/ CALCIUM [Concomitant]
     Indication: OSTEOPOROSIS
     Route: 065
  10. TRAMACET [Concomitant]
     Indication: ARTHRALGIA
     Route: 065

REACTIONS (4)
  - Arthritis bacterial [Not Recovered/Not Resolved]
  - Heart rate increased [Not Recovered/Not Resolved]
  - Septic shock [Not Recovered/Not Resolved]
  - Blood pressure decreased [Not Recovered/Not Resolved]
